FAERS Safety Report 7810311-5 (Version None)
Quarter: 2011Q4

REPORT INFORMATION
  Report Type: 
  Country: None (occurrence: None)
  Receive Date: 20111012
  Receipt Date: 20111003
  Transmission Date: 20120403
  Serious: Yes (Other)
  Sender: FDA-Public Use
  Company Number: US-CELGENEUS-163-21880-11053865

PATIENT
  Sex: Female

DRUGS (4)
  1. BIAXIN [Concomitant]
     Route: 065
  2. REVLIMID [Suspect]
     Dosage: 25 MILLIGRAM
     Route: 048
     Dates: start: 20110323, end: 20110513
  3. REVLIMID [Suspect]
     Indication: MULTIPLE MYELOMA
     Dosage: 25 MILLIGRAM
     Route: 048
     Dates: start: 20101126, end: 20101211
  4. DEXAMETHASONE [Suspect]
     Route: 065

REACTIONS (3)
  - PSYCHOTIC DISORDER [None]
  - NO THERAPEUTIC RESPONSE [None]
  - PANCYTOPENIA [None]
